FAERS Safety Report 4451546-1 (Version None)
Quarter: 2004Q3

REPORT INFORMATION
  Report Type: 
  Country: None (occurrence: None)
  Receive Date: 20040915
  Receipt Date: 20040902
  Transmission Date: 20050211
  Serious: No
  Sender: FDA-Public Use
  Company Number: 2004UW16165

PATIENT
  Age: 57 Year
  Sex: Male
  Weight: 122.4712 kg

DRUGS (15)
  1. ZOLADEX [Suspect]
     Indication: PROSTATE CANCER
     Dosage: 10.8 MG Q3MO IM
     Route: 030
     Dates: start: 20040702
  2. RETROVIR [Concomitant]
  3. NO MATCH [Concomitant]
  4. FORADIL [Concomitant]
  5. PULMICORT [Concomitant]
  6. ATROVENT [Concomitant]
  7. DUONEB [Concomitant]
  8. VIOXX [Concomitant]
  9. FUROSEMIDE [Concomitant]
  10. HYDROCORTISONE [Concomitant]
  11. TRAZODONE HCL [Concomitant]
  12. FLOMAX [Concomitant]
  13. RANITIDINE [Concomitant]
  14. QUININE [Concomitant]
  15. LAMISIL [Concomitant]

REACTIONS (2)
  - SECRETION DISCHARGE [None]
  - URTICARIA PAPULAR [None]
